FAERS Safety Report 9942409 (Version 2)
Quarter: 2014Q3

REPORT INFORMATION
  Report Type: Spontaneous
  Country: US (occurrence: US)
  Receive Date: 20140303
  Receipt Date: 20140902
  Transmission Date: 20150326
  Serious: No
  Sender: FDA-Public Use
  Company Number: US-PFIZER INC-2014060284

PATIENT
  Age: 87 Year
  Sex: Female
  Weight: 69.84 kg

DRUGS (1)
  1. LYRICA [Suspect]
     Active Substance: PREGABALIN
     Dosage: UNK

REACTIONS (2)
  - Pain in extremity [Unknown]
  - Dysphonia [Unknown]

NARRATIVE: CASE EVENT DATE: 20140227
